FAERS Safety Report 12736016 (Version 2)
Quarter: 2016Q3

REPORT INFORMATION
  Report Type: Other
  Country: IT (occurrence: IT)
  Receive Date: 20160912
  Receipt Date: 20160926
  Transmission Date: 20161109
  Serious: Yes (Hospitalization, Other)
  Sender: FDA-Public Use
  Company Number: IT-APOTEX-2016AP011371

PATIENT
  Age: 32 Year
  Sex: Male

DRUGS (5)
  1. QUETIAPINA DOC GENERICI COMPRESSE RIVESTITE CON FILM [Suspect]
     Active Substance: QUETIAPINE
     Indication: DRUG ABUSE
     Dosage: 400 MG, TOTAL
     Route: 065
     Dates: start: 20160721, end: 20160722
  2. NOZINAN                            /00038601/ [Suspect]
     Active Substance: LEVOMEPROMAZINE
     Indication: DRUG ABUSE
     Dosage: 1 DF, TOTAL
     Route: 048
     Dates: start: 20160721, end: 20160721
  3. DEPAKIN [Suspect]
     Active Substance: VALPROATE SODIUM
     Indication: MENTAL DISORDER
     Dosage: 3 DF, DAILY
     Route: 048
     Dates: start: 20160721, end: 20160722
  4. KEPPRA [Suspect]
     Active Substance: LEVETIRACETAM
     Indication: DRUG ABUSE
     Dosage: 1500 MG DAILY
     Route: 048
     Dates: start: 20160721, end: 20160722
  5. ETILTOX [Concomitant]
     Active Substance: DISULFIRAM
     Indication: DRUG ABUSE
     Dosage: 200 MG, UNK
     Route: 048

REACTIONS (3)
  - Drug abuse [Unknown]
  - Bradyphrenia [Unknown]
  - Psychomotor retardation [Unknown]

NARRATIVE: CASE EVENT DATE: 20160722
